FAERS Safety Report 13654131 (Version 1)
Quarter: 2017Q2

REPORT INFORMATION
  Report Type: Report from Study
  Country: US (occurrence: US)
  Receive Date: 20170614
  Receipt Date: 20170614
  Transmission Date: 20170830
  Serious: Yes (Hospitalization)
  Sender: FDA-Public Use
  Company Number: US-VIFOR (INTERNATIONAL) INC.-VIT-2017-06539

PATIENT
  Age: 77 Year
  Sex: Female

DRUGS (13)
  1. PRAVASTATIN. [Concomitant]
     Active Substance: PRAVASTATIN
  2. LOSARTAN. [Concomitant]
     Active Substance: LOSARTAN
  3. CIPROFLOXACIN. [Concomitant]
     Active Substance: CIPROFLOXACIN
  4. GLIPIZIDE. [Concomitant]
     Active Substance: GLIPIZIDE
  5. TIMOLOL MALEATE/DORZOLAMIDE [Concomitant]
  6. LEVEMIR [Concomitant]
     Active Substance: INSULIN DETEMIR
  7. LEVOTHYROXINE SODIUM. [Concomitant]
     Active Substance: LEVOTHYROXINE SODIUM
  8. ESOMEPRA [Concomitant]
     Active Substance: ESOMEPRAZOLE
  9. CARVEDILOL. [Concomitant]
     Active Substance: CARVEDILOL
  10. PARACETAMOL/HYDROCODONE [Concomitant]
  11. LACTULOSE. [Concomitant]
     Active Substance: LACTULOSE
  12. CYANOCOBALAMIN. [Concomitant]
     Active Substance: CYANOCOBALAMIN
  13. VELTASSA [Suspect]
     Active Substance: PATIROMER
     Indication: HYPERKALAEMIA
     Route: 048
     Dates: start: 20170317

REACTIONS (2)
  - Memory impairment [Not Recovered/Not Resolved]
  - Drug dose omission [Unknown]

NARRATIVE: CASE EVENT DATE: 2017
